FAERS Safety Report 10438687 (Version 1)
Quarter: 2014Q3

REPORT INFORMATION
  Report Type: Spontaneous
  Country: US (occurrence: US)
  Receive Date: 20140908
  Receipt Date: 20140908
  Transmission Date: 20150326
  Serious: Yes (Death, Other)
  Sender: FDA-Public Use
  Company Number: US-BRISTOL-MYERS SQUIBB COMPANY-19176627

PATIENT
  Age: 41 Year
  Sex: Female

DRUGS (6)
  1. XANAX [Concomitant]
     Active Substance: ALPRAZOLAM
     Dates: start: 2011
  2. WELLBUTRIN [Concomitant]
     Active Substance: BUPROPION HYDROCHLORIDE
     Dates: start: 2011
  3. REMERON [Concomitant]
     Active Substance: MIRTAZAPINE
     Dates: start: 2011
  4. CYCLOBENZAPRINE [Concomitant]
     Active Substance: CYCLOBENZAPRINE
     Indication: MUSCLE SPASMS
  5. ABILIFY [Suspect]
     Active Substance: ARIPIPRAZOLE
     Indication: DEPRESSION
     Dates: start: 2012
  6. ABILIFY [Suspect]
     Active Substance: ARIPIPRAZOLE
     Indication: POST-TRAUMATIC STRESS DISORDER
     Dates: start: 2012

REACTIONS (2)
  - Completed suicide [Fatal]
  - Intentional self-injury [Unknown]

NARRATIVE: CASE EVENT DATE: 20130528
